FAERS Safety Report 10589697 (Version 3)
Quarter: 2014Q4

REPORT INFORMATION
  Report Type: Report from Study
  Country: EC (occurrence: EC)
  Receive Date: 20141118
  Receipt Date: 20141215
  Transmission Date: 20150529
  Serious: Yes (Hospitalization)
  Sender: FDA-Public Use
  Company Number: PHHY2014EC149475

PATIENT
  Sex: Male

DRUGS (2)
  1. EXJADE [Suspect]
     Active Substance: DEFERASIROX
     Indication: SERUM FERRITIN INCREASED
  2. EXJADE [Suspect]
     Active Substance: DEFERASIROX
     Indication: SICKLE CELL ANAEMIA
     Dosage: 1000 MG,QD (2 DF BEFORE BREAKFAST)
     Route: 048

REACTIONS (4)
  - Gingival swelling [Not Recovered/Not Resolved]
  - Petechiae [Recovered/Resolved]
  - Haematocrit decreased [Not Recovered/Not Resolved]
  - Gingival bleeding [Recovered/Resolved]
